FAERS Safety Report 4981621-4 (Version None)
Quarter: 2006Q2

REPORT INFORMATION
  Report Type: 
  Country: None (occurrence: None)
  Receive Date: 20060425
  Receipt Date: 20060328
  Transmission Date: 20061013
  Serious: Yes (Hospitalization)
  Sender: FDA-Public Use
  Company Number: JP-ABBOTT-06P-087-0329482-00

PATIENT
  Age: 28 Year
  Sex: Female
  Weight: 48 kg

DRUGS (10)
  1. CLARITHROMYCIN [Suspect]
     Indication: COUGH
     Route: 048
     Dates: start: 20050708, end: 20050714
  2. ENOXACIN TABLETS [Suspect]
     Indication: ENTEROCOLITIS
     Route: 048
     Dates: start: 20050719, end: 20050725
  3. CIPROFLOXACIN HCL [Suspect]
     Indication: ENTEROCOLITIS
     Route: 048
     Dates: start: 20050725, end: 20050728
  4. CEFIXIME CHEWABLE [Suspect]
     Indication: DRUG USE FOR UNKNOWN INDICATION
     Route: 048
     Dates: start: 20050804, end: 20050804
  5. BROMELAIN [Concomitant]
     Indication: COUGH
     Route: 048
     Dates: start: 20050708, end: 20050711
  6. DIMEMORFAN PHOSPHATE [Concomitant]
     Indication: COUGH
     Route: 048
     Dates: start: 20050708, end: 20050714
  7. CARBOCISTEINE [Concomitant]
     Indication: COUGH
     Route: 048
     Dates: start: 20050708, end: 20050714
  8. LOXOPROFEN SODIUM [Concomitant]
     Indication: COUGH
     Route: 048
     Dates: start: 20050708, end: 20050714
  9. ALBUMIN TANNATE [Concomitant]
     Indication: ENTEROCOLITIS
     Route: 048
     Dates: start: 20050719, end: 20050728
  10. ANTIBIOTICS-RESISTANT LACTIC ACID BACTERIAE [Concomitant]
     Indication: ENTEROCOLITIS
     Route: 048
     Dates: start: 20050719, end: 20050728

REACTIONS (5)
  - DIARRHOEA [None]
  - EOSINOPHIL COUNT INCREASED [None]
  - FEELING ABNORMAL [None]
  - OEDEMA PERIPHERAL [None]
  - WHITE BLOOD CELL COUNT INCREASED [None]
